FAERS Safety Report 15286919 (Version 4)
Quarter: 2018Q3

REPORT INFORMATION
  Report Type: Report from Study
  Country: DE (occurrence: DE)
  Receive Date: 20180816
  Receipt Date: 20180927
  Transmission Date: 20181010
  Serious: Yes (Other)
  Sender: FDA-Public Use
  Company Number: DE-BAXTER-2018BAX019141

PATIENT
  Age: 85 Year
  Sex: Female

DRUGS (46)
  1. ENDOXAN 1G [Suspect]
     Active Substance: CYCLOPHOSPHAMIDE
     Dosage: 690 MG, UNK
     Route: 041
     Dates: start: 20180424, end: 20180424
  2. PREDNISONE. [Suspect]
     Active Substance: PREDNISONE
     Dosage: 420 MG, UNK
     Route: 048
     Dates: start: 20180522, end: 20180528
  3. SOLU DECORTIN [Concomitant]
     Active Substance: PREDNISOLONE SODIUM SUCCINATE
     Indication: PRODUCT USED FOR UNKNOWN INDICATION
     Dosage: UNK
     Route: 042
     Dates: start: 20180219, end: 20180219
  4. ONDANSETRON [Concomitant]
     Active Substance: ONDANSETRON
     Indication: PROPHYLAXIS
     Dosage: UNK
     Route: 042
     Dates: start: 20180220, end: 20180712
  5. DOXORUBICIN [Suspect]
     Active Substance: DOXORUBICIN
     Dosage: 45 MG, UNK
     Route: 041
     Dates: start: 20180312, end: 20180312
  6. PREDNISONE. [Suspect]
     Active Substance: PREDNISONE
     Dosage: 420 MG, UNK
     Route: 048
     Dates: start: 20180612, end: 20180618
  7. ALLOPURINOL. [Concomitant]
     Active Substance: ALLOPURINOL
     Indication: PROPHYLAXIS
     Dosage: UNK
     Route: 048
     Dates: start: 20180213, end: 20180226
  8. LEVOTHYROXIN [Concomitant]
     Active Substance: LEVOTHYROXINE
     Indication: PRODUCT USED FOR UNKNOWN INDICATION
     Dosage: UNK
     Route: 048
     Dates: start: 20180205
  9. PARACETAMOL [Concomitant]
     Active Substance: ACETAMINOPHEN
     Indication: PROPHYLAXIS
     Dosage: UNK
     Route: 048
     Dates: start: 20180219, end: 20180712
  10. DOXORUBICIN [Suspect]
     Active Substance: DOXORUBICIN
     Indication: PRODUCT USED FOR UNKNOWN INDICATION
     Dosage: 45 MG, UNK
     Route: 041
     Dates: start: 20180424, end: 20180424
  11. DOXORUBICIN [Suspect]
     Active Substance: DOXORUBICIN
     Dosage: 45 MG, UNK
     Route: 041
     Dates: start: 20180612, end: 20180612
  12. RIXIMYO [Suspect]
     Active Substance: RITUXIMAB
     Dosage: 645 MG, UNK
     Route: 041
     Dates: start: 20180424, end: 20180424
  13. VINCRISTINE [Suspect]
     Active Substance: VINCRISTINE
     Dosage: 1 MG, UNK
     Route: 041
     Dates: start: 20180220, end: 20180220
  14. VINCRISTINE [Suspect]
     Active Substance: VINCRISTINE
     Dosage: 1 MG, UNK
     Route: 041
     Dates: start: 20180424, end: 20180424
  15. VALSARTAN. [Concomitant]
     Active Substance: VALSARTAN
     Indication: HYPERTENSION
     Route: 048
  16. SALVYSAT [Concomitant]
     Active Substance: SAGE
     Indication: PROPHYLAXIS
     Dosage: UNK
     Route: 048
     Dates: start: 20180213, end: 20180703
  17. OMEPRAZOLE. [Concomitant]
     Active Substance: OMEPRAZOLE
     Indication: PROPHYLAXIS
     Dosage: UNK
     Route: 048
     Dates: start: 20180205
  18. BERODUAL [Concomitant]
     Active Substance: FENOTEROL HYDROBROMIDE\IPRATROPIUM BROMIDE
     Indication: ATRIAL FIBRILLATION
     Dosage: UNK
     Route: 061
     Dates: start: 20180109
  19. ENDOXAN 1G [Suspect]
     Active Substance: CYCLOPHOSPHAMIDE
     Dosage: 690 MG, UNK
     Route: 041
     Dates: start: 20180522, end: 20180522
  20. DOXORUBICIN [Suspect]
     Active Substance: DOXORUBICIN
     Dosage: 45 MG, UNK
     Route: 041
     Dates: start: 20180522, end: 20180522
  21. DOXORUBICIN [Suspect]
     Active Substance: DOXORUBICIN
     Dosage: 45 MG, UNK
     Route: 041
     Dates: start: 20180403, end: 20180403
  22. RIXIMYO [Suspect]
     Active Substance: RITUXIMAB
     Dosage: 645 MG, UNK
     Route: 041
     Dates: start: 20180403, end: 20180403
  23. ENDOXAN 1G [Suspect]
     Active Substance: CYCLOPHOSPHAMIDE
     Indication: DIFFUSE LARGE B-CELL LYMPHOMA
     Dosage: 690 MG, UNK
     Route: 041
     Dates: start: 20180612, end: 20180612
  24. RIXIMYO [Suspect]
     Active Substance: RITUXIMAB
     Indication: DIFFUSE LARGE B-CELL LYMPHOMA
     Dosage: 645 MG, UNK
     Route: 041
     Dates: start: 20180522, end: 20180522
  25. PREDNISONE. [Suspect]
     Active Substance: PREDNISONE
     Indication: DIFFUSE LARGE B-CELL LYMPHOMA
     Dosage: 420 MG, UNK
     Route: 048
     Dates: start: 20180424, end: 20180430
  26. BISOPROLOL [Concomitant]
     Active Substance: BISOPROLOL
     Indication: HYPERTENSION
     Route: 048
  27. TORASEMID [Concomitant]
     Active Substance: TORSEMIDE
     Indication: HYPERTENSION
     Route: 048
  28. BUDESONID [Concomitant]
     Active Substance: BUDESONIDE
     Indication: ATRIAL FIBRILLATION
     Dosage: UNK
     Route: 061
     Dates: start: 20180109
  29. ENDOXAN 1G [Suspect]
     Active Substance: CYCLOPHOSPHAMIDE
     Dosage: 690 MG, UNK
     Route: 041
     Dates: start: 20180403, end: 20180403
  30. RIXIMYO [Suspect]
     Active Substance: RITUXIMAB
     Dosage: 645 MG, UNK
     Route: 041
     Dates: start: 20180312, end: 20180312
  31. PREDNISONE. [Suspect]
     Active Substance: PREDNISONE
     Dosage: 420 MG, UNK
     Route: 048
     Dates: start: 20180403, end: 20180409
  32. VINCRISTINE [Suspect]
     Active Substance: VINCRISTINE
     Indication: DIFFUSE LARGE B-CELL LYMPHOMA
     Dosage: 0.5 MG, UNK
     Route: 041
     Dates: start: 20180220, end: 20180220
  33. VINCRISTINE [Suspect]
     Active Substance: VINCRISTINE
     Indication: PRODUCT USED FOR UNKNOWN INDICATION
     Dosage: 1 MG, UNK
     Route: 041
     Dates: start: 20180312, end: 20180312
  34. VINCRISTINE [Suspect]
     Active Substance: VINCRISTINE
     Dosage: 1 MG, UNK
     Route: 041
     Dates: start: 20180403, end: 20180403
  35. APIXABAN [Concomitant]
     Active Substance: APIXABAN
     Indication: ATRIAL FIBRILLATION
     Route: 048
  36. ENDOXAN 1G [Suspect]
     Active Substance: CYCLOPHOSPHAMIDE
     Dosage: 690 MG, UNK
     Route: 041
     Dates: start: 20180312, end: 20180312
  37. DOXORUBICIN [Suspect]
     Active Substance: DOXORUBICIN
     Indication: DIFFUSE LARGE B-CELL LYMPHOMA
     Dosage: 45 MG, UNK
     Route: 041
     Dates: start: 20180220, end: 20180220
  38. RIXIMYO [Suspect]
     Active Substance: RITUXIMAB
     Dosage: 645 MG, UNK
     Route: 041
     Dates: start: 20180612, end: 20180612
  39. RIXIMYO [Suspect]
     Active Substance: RITUXIMAB
     Dosage: 645 MG, UNK
     Route: 041
     Dates: start: 20180703
  40. PREDNISONE. [Suspect]
     Active Substance: PREDNISONE
     Dosage: 120 MG, UNK
     Route: 048
     Dates: start: 20180219, end: 20180225
  41. METFORMIN [Concomitant]
     Active Substance: METFORMIN HYDROCHLORIDE
     Indication: TYPE 2 DIABETES MELLITUS
     Route: 048
  42. ENDOXAN 1G [Suspect]
     Active Substance: CYCLOPHOSPHAMIDE
     Indication: PRODUCT USED FOR UNKNOWN INDICATION
     Dosage: 690 MG, UNK
     Route: 041
     Dates: start: 20180220, end: 20180220
  43. RIXIMYO [Suspect]
     Active Substance: RITUXIMAB
     Indication: PRODUCT USED FOR UNKNOWN INDICATION
     Dosage: 645 MG, UNK
     Route: 041
     Dates: start: 20180219, end: 20180219
  44. PREDNISONE. [Suspect]
     Active Substance: PREDNISONE
     Indication: PRODUCT USED FOR UNKNOWN INDICATION
     Dosage: 420 MG, UNK
     Route: 048
     Dates: start: 20180312, end: 20180318
  45. COTRIM FORTE [Concomitant]
     Active Substance: SULFAMETHOXAZOLE\TRIMETHOPRIM
     Indication: PROPHYLAXIS
     Dosage: UNK
     Route: 048
     Dates: start: 20180213, end: 20180703
  46. TAVEGIL [Concomitant]
     Active Substance: CLEMASTINE FUMARATE
     Indication: PROPHYLAXIS
     Dosage: UNK
     Route: 042
     Dates: start: 20180219, end: 20180612

REACTIONS (3)
  - Neuropathy peripheral [Unknown]
  - Dry mouth [Recovered/Resolved]
  - Off label use [Unknown]

NARRATIVE: CASE EVENT DATE: 20180508
